FAERS Safety Report 6241985-0 (Version None)
Quarter: 2009Q2

REPORT INFORMATION
  Report Type: 
  Country: None (occurrence: None)
  Receive Date: 20090617
  Receipt Date: 20090603
  Transmission Date: 20091009
  Serious: Yes (Hospitalization)
  Sender: FDA-Public Use
  Company Number: 20090603CINRY1003

PATIENT
  Age: 30 Year
  Sex: Female

DRUGS (2)
  1. CINRYZE [Suspect]
     Indication: ANGIOEDEMA
     Dosage: 1000 UNIT, EVERY 60 HOURS TO 72 HOURS) INTRAVENOUS
     Route: 042
     Dates: start: 20090301, end: 20090602
  2. CINRYZE [Suspect]
     Indication: PROPHYLAXIS
     Dosage: 1000 UNIT, EVERY 60 HOURS TO 72 HOURS) INTRAVENOUS
     Route: 042
     Dates: start: 20090301, end: 20090602

REACTIONS (1)
  - EMBOLIC STROKE [None]
